FAERS Safety Report 7374448-X (Version None)
Quarter: 2011Q1

REPORT INFORMATION
  Report Type: 
  Country: None (occurrence: None)
  Receive Date: 20110325
  Receipt Date: 20110321
  Transmission Date: 20110831
  Serious: Yes (Other)
  Sender: FDA-Public Use
  Company Number: US-SANOFI-AVENTIS-2011SA017551

PATIENT
  Age: 59 Year
  Sex: Female

DRUGS (1)
  1. FEXOFENADINE HCL [Suspect]
     Route: 048
     Dates: start: 20110301

REACTIONS (4)
  - HYPERSENSITIVITY [None]
  - SWOLLEN TONGUE [None]
  - DYSPNOEA [None]
  - PRODUCTIVE COUGH [None]
